FAERS Safety Report 20124638 (Version 1)
Quarter: 2021Q4

REPORT INFORMATION
  Report Type: Spontaneous
  Country: FR (occurrence: FR)
  Receive Date: 20211129
  Receipt Date: 20211129
  Transmission Date: 20220304
  Serious: Yes (Hospitalization)
  Sender: FDA-Public Use
  Company Number: None

PATIENT
  Age: 53 Year
  Sex: Female

DRUGS (1)
  1. PAROXETINE HYDROCHLORIDE [Suspect]
     Active Substance: PAROXETINE HYDROCHLORIDE
     Dosage: 10 MG
     Route: 048

REACTIONS (2)
  - Drug dependence [Recovering/Resolving]
  - Antidepressant discontinuation syndrome [Recovered/Resolved]

NARRATIVE: CASE EVENT DATE: 20190520
